FAERS Safety Report 8899407 (Version 1)
Quarter: 2012Q4

REPORT INFORMATION
  Report Type: 
  Country: US (occurrence: US)
  Receive Date: 20121108
  Receipt Date: 20121108
  Transmission Date: 20130627
  Serious: No
  Sender: FDA-Public Use
  Company Number: US-AMGEN-USASP2012025949

PATIENT
  Age: 64 Year
  Sex: Male
  Weight: 105.67 kg

DRUGS (2)
  1. ENBREL [Suspect]
     Indication: PRODUCT USED FOR UNKNOWN INDICATION
     Dosage: 50 mg, qwk
     Route: 058
  2. METOPROLOL TARTRATE [Concomitant]
     Dosage: 100 mg, UNK

REACTIONS (2)
  - Hyperhidrosis [Unknown]
  - Oedema peripheral [Unknown]
